FAERS Safety Report 20961467 (Version 1)
Quarter: 2022Q2

REPORT INFORMATION
  Report Type: Spontaneous
  Country: FR (occurrence: FR)
  Receive Date: 20220615
  Receipt Date: 20220615
  Transmission Date: 20220720
  Serious: Yes (Other)
  Sender: FDA-Public Use
  Company Number: None

PATIENT
  Age: 59 Year
  Sex: Female

DRUGS (3)
  1. CARBOPLATIN [Suspect]
     Active Substance: CARBOPLATIN
     Indication: Bronchial carcinoma
     Route: 042
     Dates: start: 20200827, end: 20201103
  2. PEMBROLIZUMAB [Suspect]
     Active Substance: PEMBROLIZUMAB
     Indication: Bronchial carcinoma
     Dosage: STRENGTH:25 MG/ML
     Route: 042
     Dates: start: 20200827, end: 20220331
  3. ALIMTA [Suspect]
     Active Substance: PEMETREXED DISODIUM
     Indication: Bronchial carcinoma
     Dosage: STRENGTH:500MG
     Route: 042
     Dates: start: 20200827, end: 20220331

REACTIONS (1)
  - Mixed deafness [Not Recovered/Not Resolved]

NARRATIVE: CASE EVENT DATE: 20210602
